FAERS Safety Report 9265779 (Version 11)
Quarter: 2015Q1

REPORT INFORMATION
  Report Type: Spontaneous
  Country: US (occurrence: US)
  Receive Date: 20130501
  Receipt Date: 20150316
  Transmission Date: 20150721
  Serious: Yes (Hospitalization, Other)
  Sender: FDA-Public Use
  Company Number: US-GLAXOSMITHKLINE-A1014805A

PATIENT
  Age: 39 Year
  Sex: Female
  Weight: 65 kg

DRUGS (10)
  1. FLOLAN [Suspect]
     Active Substance: EPOPROSTENOL SODIUM
     Indication: PULMONARY ARTERIAL HYPERTENSION
     Dosage: 5 NG/KG/MIN9 NG/KG/MIN, CONCENTRATION 15,000 NG/ML, 1.5 MG VIAL STRENGTH8.5 NG/MG/MIN, CONCENTR[...]
     Route: 042
     Dates: start: 20130118
  2. FLOLAN [Suspect]
     Active Substance: EPOPROSTENOL SODIUM
     Dates: start: 20130118
  3. REVATIO [Concomitant]
     Active Substance: SILDENAFIL CITRATE
  4. FLOLAN [Suspect]
     Active Substance: EPOPROSTENOL SODIUM
     Dates: start: 20130118
  5. FLOLAN [Suspect]
     Active Substance: EPOPROSTENOL SODIUM
     Dosage: 16 NG/KG/MIN CONTINUOUSLY
     Route: 042
  6. FLOLAN [Suspect]
     Active Substance: EPOPROSTENOL SODIUM
     Dates: start: 20130118
  7. FLOLAN [Suspect]
     Active Substance: EPOPROSTENOL SODIUM
     Dates: start: 20130118
  8. FLOLAN [Suspect]
     Active Substance: EPOPROSTENOL SODIUM
     Dosage: UNK
     Dates: start: 20130118
  9. TRACLEER [Concomitant]
     Active Substance: BOSENTAN\BOSENTAN MONOHYDRATE
  10. FLOLAN [Suspect]
     Active Substance: EPOPROSTENOL SODIUM
     Dosage: 17NG/KG/MIN 1.5 MG VIAL, 30,000NG/ML, 59ML/DAY PUMP RATE

REACTIONS (13)
  - Application site papules [Recovered/Resolved]
  - Dermatitis contact [Recovered/Resolved]
  - Device breakage [Unknown]
  - Asthenia [Unknown]
  - Application site reaction [Recovered/Resolved]
  - Catheter site erythema [Recovered/Resolved]
  - Catheter site pruritus [Recovered/Resolved]
  - Multiple allergies [Recovered/Resolved]
  - Catheter removal [Unknown]
  - Medical device complication [Unknown]
  - Device related infection [Unknown]
  - Central venous catheterisation [Recovered/Resolved]
  - Catheter site related reaction [Unknown]

NARRATIVE: CASE EVENT DATE: 201304
